FAERS Safety Report 5099671-9 (Version None)
Quarter: 2006Q3

REPORT INFORMATION
  Report Type: 
  Country: None (occurrence: None)
  Receive Date: 20060908
  Receipt Date: 20060314
  Transmission Date: 20061208
  Serious: Yes (Life-Threatening)
  Sender: FDA-Public Use
  Company Number: NL-AVENTIS-200612565GDDC

PATIENT
  Age: 48 Year
  Sex: Male
  Weight: 73 kg

DRUGS (3)
  1. LANTUS [Suspect]
     Indication: DIABETES MELLITUS INSULIN-DEPENDENT
     Route: 058
  2. OPTIPEN (INSULIN PUMP) [Suspect]
  3. ACTRAPID [Concomitant]
     Indication: DIABETES MELLITUS
     Dosage: FREQUENCY: BEFORE MEALS
     Route: 058

REACTIONS (7)
  - ACCIDENTAL OVERDOSE [None]
  - CONVULSION [None]
  - DEVICE MALFUNCTION [None]
  - HYPOGLYCAEMIA [None]
  - JOINT DISLOCATION [None]
  - PHARMACEUTICAL PRODUCT COMPLAINT [None]
  - UPPER LIMB FRACTURE [None]
